FAERS Safety Report 7659862-7 (Version None)
Quarter: 2011Q3

REPORT INFORMATION
  Report Type: 
  Country: None (occurrence: None)
  Receive Date: 20110805
  Receipt Date: 20110504
  Transmission Date: 20111222
  Serious: No
  Sender: FDA-Public Use
  Company Number: US-ABBOTT-11P-163-0721287-00

PATIENT
  Age: 56 Year
  Sex: Male

DRUGS (7)
  1. LITHIUM CARBONATE [Suspect]
     Indication: PRODUCT USED FOR UNKNOWN INDICATION
  2. DEPAKOTE ER [Suspect]
     Indication: PRODUCT USED FOR UNKNOWN INDICATION
  3. GEODON [Suspect]
     Indication: PRODUCT USED FOR UNKNOWN INDICATION
  4. ABILIFY [Suspect]
     Indication: PRODUCT USED FOR UNKNOWN INDICATION
  5. SEROQUEL [Suspect]
     Indication: PRODUCT USED FOR UNKNOWN INDICATION
  6. LATUDA [Suspect]
     Dosage: 20MG, 1/2 OF 40MG TABLET
     Route: 048
     Dates: start: 20110216, end: 20110217
  7. LATUDA [Suspect]
     Indication: DEPRESSION
     Dosage: 1/4 OF 40MG TABLET, EVERY NIGHT
     Route: 048
     Dates: start: 20110207, end: 20110216

REACTIONS (1)
  - ANXIETY [None]
